FAERS Safety Report 5969539-1 (Version None)
Quarter: 2008Q4

REPORT INFORMATION
  Report Type: 
  Country: None (occurrence: None)
  Receive Date: 20081126
  Receipt Date: 20081112
  Transmission Date: 20090506
  Serious: No
  Sender: FDA-Public Use
  Company Number: US-ABBOTT-08P-163-0475510-00

PATIENT
  Sex: Female
  Weight: 76.726 kg

DRUGS (13)
  1. SIMCOR [Suspect]
     Indication: BLOOD CHOLESTEROL INCREASED
     Dosage: ONE DAILY AT BEDTIME
     Dates: start: 20080822, end: 20081001
  2. SIMCOR [Suspect]
     Indication: BLOOD TRIGLYCERIDES INCREASED
  3. PREDNISONE TAB [Concomitant]
     Indication: DRUG USE FOR UNKNOWN INDICATION
  4. RANITIDINE [Concomitant]
     Indication: DRUG USE FOR UNKNOWN INDICATION
  5. BISELECT [Concomitant]
     Indication: DRUG USE FOR UNKNOWN INDICATION
  6. FOSINOPRIL SODIUM [Concomitant]
     Indication: DRUG USE FOR UNKNOWN INDICATION
  7. LEVOFLOXACIN [Concomitant]
     Indication: DRUG USE FOR UNKNOWN INDICATION
  8. LEVOTHYROXINE SODIUM [Concomitant]
     Indication: DRUG USE FOR UNKNOWN INDICATION
  9. FOLIC ACID [Concomitant]
     Indication: DRUG USE FOR UNKNOWN INDICATION
  10. ASCORBIC ACID [Concomitant]
     Indication: DRUG USE FOR UNKNOWN INDICATION
  11. CALCIUM [Concomitant]
     Indication: DRUG USE FOR UNKNOWN INDICATION
  12. ERGOCALCIFEROL [Concomitant]
     Indication: DRUG USE FOR UNKNOWN INDICATION
  13. POVIDONE IODINE [Concomitant]
     Indication: DRUG USE FOR UNKNOWN INDICATION

REACTIONS (4)
  - ABDOMINAL DISCOMFORT [None]
  - CHEST PAIN [None]
  - MUSCLE SPASMS [None]
  - NAUSEA [None]
